FAERS Safety Report 8990749 (Version 3)
Quarter: 2013Q1

REPORT INFORMATION
  Report Type: Spontaneous
  Country: US (occurrence: US)
  Receive Date: 20121228
  Receipt Date: 20130125
  Transmission Date: 20140127
  Serious: Yes (Hospitalization)
  Sender: FDA-Public Use
  Company Number: US-SANOFI-AVENTIS-2012SA093654

PATIENT
  Age: 45 Year
  Sex: Female

DRUGS (13)
  1. SOLOSTAR [Suspect]
     Indication: DIABETES MELLITUS
  2. SOLOSTAR [Suspect]
     Indication: DIABETES MELLITUS
  3. LANTUS SOLOSTAR [Suspect]
     Route: 058
  4. LANTUS SOLOSTAR [Suspect]
     Route: 058
  5. SERTRALINE [Concomitant]
     Indication: AFFECTIVE DISORDER
  6. ZOLPIDEM [Concomitant]
  7. CYCLOBENZAPRINE [Concomitant]
     Indication: MUSCLE SPASMS
  8. ALL OTHER THERAPEUTIC PRODUCTS [Concomitant]
     Dosage: DOSE:6 TEASPOON(S)
  9. GLUCAGON [Concomitant]
     Indication: BLOOD GLUCOSE DECREASED
  10. MULTIVITAMINS [Concomitant]
  11. TRAMADOL [Concomitant]
  12. LYRICA [Concomitant]
     Dosage: DOSE:300 UNIT(S)
  13. HUMALOG [Concomitant]

REACTIONS (2)
  - Hospitalisation [Unknown]
  - Drug ineffective [Unknown]
